FAERS Safety Report 5346502-5 (Version None)
Quarter: 2007Q2

REPORT INFORMATION
  Report Type: 
  Country: None (occurrence: None)
  Receive Date: 20070605
  Receipt Date: 20070527
  Transmission Date: 20071010
  Serious: Yes (Other)
  Sender: FDA-Public Use
  Company Number: US-PFIZER INC-2007044199

PATIENT
  Sex: Female

DRUGS (1)
  1. XALATAN [Suspect]
     Dates: start: 20070511, end: 20070501

REACTIONS (6)
  - BLINDNESS [None]
  - DYSGRAPHIA [None]
  - EYE IRRITATION [None]
  - EYE PAIN [None]
  - FOREIGN BODY SENSATION IN EYES [None]
  - OCULAR HYPERAEMIA [None]
